FAERS Safety Report 10483385 (Version 2)
Quarter: 2014Q3

REPORT INFORMATION
  Report Type: Report from Study
  Country: US (occurrence: US)
  Receive Date: 20140930
  Receipt Date: 20140930
  Transmission Date: 20150326
  Serious: Yes (Other)
  Sender: FDA-Public Use
  Company Number: US-ROCHE-1452519

PATIENT
  Age: 51 Year
  Sex: Female
  Weight: 79.45 kg

DRUGS (1)
  1. ERIVEDGE [Suspect]
     Active Substance: VISMODEGIB
     Indication: BASAL CELL CARCINOMA
     Route: 048
     Dates: start: 20140715, end: 20140808

REACTIONS (9)
  - Alopecia [Not Recovered/Not Resolved]
  - Atrial fibrillation [Recovered/Resolved]
  - Malaise [Unknown]
  - Dizziness [Not Recovered/Not Resolved]
  - Feeling abnormal [Not Recovered/Not Resolved]
  - Headache [Unknown]
  - Poor quality sleep [Not Recovered/Not Resolved]
  - Sinusitis [Unknown]
  - Bronchitis [Recovered/Resolved]

NARRATIVE: CASE EVENT DATE: 20140814
